FAERS Safety Report 18946645 (Version 2)
Quarter: 2021Q1

REPORT INFORMATION
  Report Type: Spontaneous
  Country: JP (occurrence: JP)
  Receive Date: 20210226
  Receipt Date: 20210322
  Transmission Date: 20210420
  Serious: Yes (Death, Other)
  Sender: FDA-Public Use
  Company Number: JP-JNJFOC-20210241583

PATIENT
  Age: 57 Year
  Sex: Female
  Weight: 41 kg

DRUGS (11)
  1. UPTRAVI [Suspect]
     Active Substance: SELEXIPAG
     Route: 048
     Dates: start: 202003, end: 202003
  2. UPTRAVI [Suspect]
     Active Substance: SELEXIPAG
     Route: 048
     Dates: end: 20201228
  3. UPTRAVI [Suspect]
     Active Substance: SELEXIPAG
     Route: 048
  4. OPSUMIT [Suspect]
     Active Substance: MACITENTAN
     Indication: PULMONARY ARTERIAL HYPERTENSION
     Route: 048
     Dates: start: 20180522, end: 20180524
  5. UPTRAVI [Suspect]
     Active Substance: SELEXIPAG
     Route: 048
     Dates: start: 202003, end: 202003
  6. UPTRAVI [Suspect]
     Active Substance: SELEXIPAG
     Route: 048
  7. UPTRAVI [Suspect]
     Active Substance: SELEXIPAG
     Route: 048
  8. ADEMPAS [Concomitant]
     Active Substance: RIOCIGUAT
     Indication: PULMONARY ARTERIAL HYPERTENSION
     Route: 048
     Dates: end: 20201228
  9. OPSUMIT [Suspect]
     Active Substance: MACITENTAN
     Route: 048
     Dates: start: 20180525, end: 20201228
  10. UPTRAVI [Suspect]
     Active Substance: SELEXIPAG
     Indication: PULMONARY ARTERIAL HYPERTENSION
     Route: 048
     Dates: start: 20200309, end: 202003
  11. UPTRAVI [Suspect]
     Active Substance: SELEXIPAG
     Route: 048

REACTIONS (3)
  - Right ventricular failure [Fatal]
  - Pulmonary arterial hypertension [Fatal]
  - Sudden death [Fatal]
